FAERS Safety Report 7829832-4 (Version None)
Quarter: 2011Q4

REPORT INFORMATION
  Report Type: 
  Country: None (occurrence: None)
  Receive Date: 20111019
  Receipt Date: 20111013
  Transmission Date: 20120403
  Serious: Yes (Hospitalization)
  Sender: FDA-Public Use
  Company Number: 1000024238

PATIENT
  Age: 79 Year
  Sex: Female
  Weight: 85.73 kg

DRUGS (12)
  1. PERFOROMIST [Concomitant]
  2. PROVENTIL-HFA [Concomitant]
  3. DALIRESP [Suspect]
     Indication: CHRONIC OBSTRUCTIVE PULMONARY DISEASE
     Dosage: 500 MCG (500 MCG, 1 IN 1 D), ORAL
     Route: 048
     Dates: start: 20110824, end: 20110923
  4. COZAAR [Concomitant]
  5. PRILOSEC [Concomitant]
  6. BUDESONIDE [Concomitant]
  7. ZOCOR [Concomitant]
  8. ZOLOFT [Suspect]
     Indication: DEPRESSION
     Dosage: 50 MG (50 MG, 1 IN 1 D), ORAL
     Route: 048
     Dates: start: 20110830
  9. MULTIVITTAMIN [Concomitant]
  10. DELTASONE [Concomitant]
  11. NORVASC [Concomitant]
  12. CELEXA [Concomitant]

REACTIONS (9)
  - FEAR [None]
  - DIARRHOEA [None]
  - DYSPNOEA [None]
  - VOMITING [None]
  - TREMOR [None]
  - NAUSEA [None]
  - DECREASED APPETITE [None]
  - MOOD ALTERED [None]
  - CHILLS [None]
